FAERS Safety Report 18795115 (Version 1)
Quarter: 2021Q1

REPORT INFORMATION
  Report Type: Spontaneous
  Country: CN (occurrence: CN)
  Receive Date: 20210127
  Receipt Date: 20210127
  Transmission Date: 20210419
  Serious: Yes (Life-Threatening, Other)
  Sender: FDA-Public Use
  Company Number: CN-TOPROL-2021000010

PATIENT
  Age: 87 Year
  Sex: Female
  Weight: 67 kg

DRUGS (2)
  1. BETALOC ZOK [Suspect]
     Active Substance: METOPROLOL SUCCINATE
     Indication: ARRHYTHMIA
     Dosage: 1.5 PIECE TABLET QD
     Route: 048
     Dates: start: 20191001, end: 20201201
  2. BETALOC ZOK [Suspect]
     Active Substance: METOPROLOL SUCCINATE
     Indication: ARRHYTHMIA
     Route: 048

REACTIONS (9)
  - Bradycardia [Unknown]
  - Ventricular extrasystoles [Unknown]
  - Nodal rhythm [Unknown]
  - Supraventricular extrasystoles [Unknown]
  - Syncope [Recovered/Resolved]
  - Atrial flutter [Unknown]
  - Electrocardiogram ST-T change [Unknown]
  - Cardiac arrest [Unknown]
  - Sinus arrest [Unknown]

NARRATIVE: CASE EVENT DATE: 20201128
